FAERS Safety Report 5874933-3 (Version None)
Quarter: 2008Q3

REPORT INFORMATION
  Report Type: 
  Country: None (occurrence: None)
  Receive Date: 20080904
  Receipt Date: 20080225
  Transmission Date: 20090109
  Serious: Yes (Other)
  Sender: FDA-Public Use
  Company Number: 2008-00218FE

PATIENT
  Age: 22 Year
  Sex: Male

DRUGS (4)
  1. HCG (HCG) [Suspect]
     Indication: HYPOGONADISM
     Dosage: 4000 IU/3000 IU QW
     Dates: start: 19970101, end: 19970101
  2. HCG (HCG) [Suspect]
     Indication: HYPOGONADISM
     Dosage: 4000 IU/3000 IU QW
     Dates: start: 19971215, end: 20001201
  3. HMG [Suspect]
     Indication: HYPOGONADISM
     Dosage: 150 IU QW
     Route: 015
     Dates: start: 19971215, end: 20001201
  4. GNRH [Suspect]
     Dosage: 100 MCG

REACTIONS (7)
  - BLOOD TESTOSTERONE DECREASED [None]
  - CONDITION AGGRAVATED [None]
  - DRUG RESISTANCE [None]
  - DRUG SPECIFIC ANTIBODY PRESENT [None]
  - HYPOTHYROIDISM [None]
  - LIBIDO DECREASED [None]
  - TREATMENT FAILURE [None]
